FAERS Safety Report 23289755 (Version 1)
Quarter: 2023Q4

REPORT INFORMATION
  Report Type: Spontaneous
  Country: CN (occurrence: CN)
  Receive Date: 20231212
  Receipt Date: 20231212
  Transmission Date: 20240109
  Serious: Yes (Death, Hospitalization, Other)
  Sender: FDA-Public Use
  Company Number: CN-009507513-2308CHN011100

PATIENT
  Age: 37 Year
  Sex: Female
  Weight: 54 kg

DRUGS (30)
  1. KEYTRUDA [Suspect]
     Active Substance: PEMBROLIZUMAB
     Indication: Malignant melanoma
     Dosage: 200 MG, Q3W; STRENGTH: 4ML; KIT NUMBER: U030577
     Route: 042
     Dates: start: 20221111, end: 20221111
  2. KEYTRUDA [Suspect]
     Active Substance: PEMBROLIZUMAB
     Dosage: 200 MG, Q3W; STRENGTH: 4ML; KIT NUMBER: U030577
     Route: 042
     Dates: start: 20221213, end: 20221213
  3. KEYTRUDA [Suspect]
     Active Substance: PEMBROLIZUMAB
     Dosage: 200 MG, Q3W; STRENGTH: 4ML; KIT NUMBER: U036695
     Route: 042
     Dates: start: 20230105, end: 20230105
  4. KEYTRUDA [Suspect]
     Active Substance: PEMBROLIZUMAB
     Dosage: 200 MG, Q3W; STRENGTH: 4ML; KIT NUMBER: U036695
     Route: 042
     Dates: start: 20230316, end: 20230316
  5. KEYTRUDA [Suspect]
     Active Substance: PEMBROLIZUMAB
     Dosage: 200 MG, Q3W; STRENGTH: 4ML; KIT NUMBER: W012287
     Route: 042
     Dates: start: 20230406, end: 20230406
  6. KEYTRUDA [Suspect]
     Active Substance: PEMBROLIZUMAB
     Dosage: 200 MG, Q3W; STRENGTH: 4ML; KIT NUMBER: W012287
     Route: 042
     Dates: start: 20230427, end: 20230427
  7. KEYTRUDA [Suspect]
     Active Substance: PEMBROLIZUMAB
     Dosage: 200 MG, Q3W; STRENGTH: 4ML; KIT NUMBER: W012287
     Route: 042
     Dates: start: 20230518, end: 20230518
  8. KEYTRUDA [Suspect]
     Active Substance: PEMBROLIZUMAB
     Dosage: 200 MG, Q3W; STRENGTH: 4ML; KIT NUMBER: W012287
     Route: 042
     Dates: start: 20230608, end: 20230608
  9. KEYTRUDA [Suspect]
     Active Substance: PEMBROLIZUMAB
     Dosage: 200 MG, Q3W; STRENGTH: 4ML; KIT NUMBER: U036695
     Route: 042
     Dates: start: 20230629, end: 20230629
  10. KEYTRUDA [Suspect]
     Active Substance: PEMBROLIZUMAB
     Dosage: 200 MG, Q3W; STRENGTH: 4ML; KIT NUMBER: U036695
     Route: 042
     Dates: start: 20230720, end: 20230720
  11. PACLITAXEL [Suspect]
     Active Substance: PACLITAXEL
     Indication: Malignant melanoma
     Dosage: 320 MG, Q3W; STRENGTH: 100 MG; KIT NUMBER: B042112420
     Route: 042
     Dates: start: 20221111, end: 20221111
  12. PACLITAXEL [Suspect]
     Active Substance: PACLITAXEL
     Dosage: 340 MG, Q3W; STRENGTH: 100 MG; KIT NUMBER: B042112420
     Route: 042
     Dates: start: 20221213, end: 20221213
  13. PACLITAXEL [Suspect]
     Active Substance: PACLITAXEL
     Dosage: 340 MG, Q3W; STRENGTH: 100 MG; KIT NUMBER: B042207402
     Route: 042
     Dates: start: 20230105, end: 20230105
  14. PACLITAXEL [Suspect]
     Active Substance: PACLITAXEL
     Dosage: 320 MG, Q3W; STRENGTH: 100 MG; KIT NUMBER:B042207437
     Route: 042
     Dates: start: 20230316, end: 20230316
  15. PACLITAXEL [Suspect]
     Active Substance: PACLITAXEL
     Dosage: 320 MG, Q3W; STRENGTH: 100 MG; KIT NUMBER:B042207437
     Route: 042
     Dates: start: 20230406, end: 20230406
  16. PACLITAXEL [Suspect]
     Active Substance: PACLITAXEL
     Dosage: 320 MG, Q3W; STRENGTH: 100 MG; KIT NUMBER: B042209605
     Route: 042
     Dates: start: 20230427, end: 20230427
  17. PACLITAXEL [Suspect]
     Active Substance: PACLITAXEL
     Dosage: 320 MG, Q3W; STRENGTH: 100 MG; KIT NUMBER: B042209605
     Route: 042
     Dates: start: 20230518, end: 20230518
  18. PACLITAXEL [Suspect]
     Active Substance: PACLITAXEL
     Dosage: 320 MG, Q3W; STRENGTH: 100 MG; KIT NUMBER: B042209605
     Route: 042
     Dates: start: 20230608, end: 20230608
  19. PACLITAXEL [Suspect]
     Active Substance: PACLITAXEL
     Dosage: 340 MG, Q3W; STRENGTH: 100 MG; KIT NUMBER: B042209605
     Route: 042
     Dates: start: 20230629, end: 20230629
  20. PACLITAXEL [Suspect]
     Active Substance: PACLITAXEL
     Dosage: 320 MG, Q3W; STRENGTH: 100 MG; KIT NUMBER: B042209605
     Route: 042
     Dates: start: 20230720, end: 20230720
  21. INVESTIGATIONAL PRODUCT [Suspect]
     Active Substance: INVESTIGATIONAL PRODUCT
     Indication: Malignant melanoma
     Dosage: 17.85 MILLIGRAM, Q3W; STRENGTH: 2 ML; KIT NUMBER: C17266-202201001
     Route: 042
     Dates: start: 20221111, end: 20221111
  22. INVESTIGATIONAL PRODUCT [Suspect]
     Active Substance: INVESTIGATIONAL PRODUCT
     Dosage: 18.45 MILLIGRAM, Q3W; STRENGTH: 2 ML
     Route: 042
     Dates: start: 20221213, end: 20221213
  23. INVESTIGATIONAL PRODUCT [Suspect]
     Active Substance: INVESTIGATIONAL PRODUCT
     Dosage: 19.20 MILLIGRAM, Q3W; STRENGTH: 2 ML
     Route: 042
     Dates: start: 20230105, end: 20230105
  24. INVESTIGATIONAL PRODUCT [Suspect]
     Active Substance: INVESTIGATIONAL PRODUCT
     Dosage: 17.70 MILLIGRAM, Q3W; STRENGTH: 2 ML
     Route: 042
     Dates: start: 20230316, end: 20230316
  25. INVESTIGATIONAL PRODUCT [Suspect]
     Active Substance: INVESTIGATIONAL PRODUCT
     Dosage: 17.70 MILLIGRAM, Q3W; STRENGTH: 2 ML
     Route: 042
     Dates: start: 20230406, end: 20230406
  26. INVESTIGATIONAL PRODUCT [Suspect]
     Active Substance: INVESTIGATIONAL PRODUCT
     Dosage: 17.85 MLLIGRAM, Q3W; STRENGTH: 2 ML
     Route: 042
     Dates: start: 20230427, end: 20230427
  27. INVESTIGATIONAL PRODUCT [Suspect]
     Active Substance: INVESTIGATIONAL PRODUCT
     Dosage: 17.85 MLLIGRAM, Q3W; STRENGTH: 2 ML
     Route: 042
     Dates: start: 20230518, end: 20230518
  28. INVESTIGATIONAL PRODUCT [Suspect]
     Active Substance: INVESTIGATIONAL PRODUCT
     Dosage: 17.85 MLLIGRAM, Q3W; STRENGTH: 2 ML
     Route: 042
     Dates: start: 20230608, end: 20230608
  29. INVESTIGATIONAL PRODUCT [Suspect]
     Active Substance: INVESTIGATIONAL PRODUCT
     Dosage: 18.00 MLLIGRAM, Q3W; STRENGTH: 2 ML
     Route: 042
     Dates: start: 20230629, end: 20230629
  30. INVESTIGATIONAL PRODUCT [Suspect]
     Active Substance: INVESTIGATIONAL PRODUCT
     Dosage: 17.85 MLLIGRAM, Q3W; STRENGTH: 2 ML
     Route: 042
     Dates: start: 20230720, end: 20230720

REACTIONS (2)
  - Immune-mediated enterocolitis [Recovered/Resolved]
  - Malignant neoplasm progression [Fatal]

NARRATIVE: CASE EVENT DATE: 20230724
